FAERS Safety Report 17146315 (Version 2)
Quarter: 2019Q4

REPORT INFORMATION
  Report Type: Report from Study
  Country: US (occurrence: US)
  Receive Date: 20191212
  Receipt Date: 20191224
  Transmission Date: 20200122
  Serious: Yes (Death)
  Sender: FDA-Public Use
  Company Number: US-ROCHE-2492456

PATIENT
  Age: 53 Year
  Sex: Female

DRUGS (3)
  1. RITUXAN [Suspect]
     Active Substance: RITUXIMAB
     Indication: MYASTHENIA GRAVIS
     Dosage: INFUSE 700MG INTRAVENOUSLY EVERY 6 MONTH(S)
     Route: 042
     Dates: start: 20190524
  2. RITUXAN [Suspect]
     Active Substance: RITUXIMAB
     Route: 042
     Dates: start: 20170830
  3. RITUXAN [Suspect]
     Active Substance: RITUXIMAB
     Dosage: INFUSE 700MG INTRAVENOUSLY EVERY 6 MONTH(S)
     Route: 042
     Dates: start: 20181220

REACTIONS (3)
  - Cardiac arrest [Fatal]
  - Intentional product use issue [Unknown]
  - Off label use [Unknown]

NARRATIVE: CASE EVENT DATE: 20190824
